FAERS Safety Report 25616343 (Version 1)
Quarter: 2025Q3

REPORT INFORMATION
  Report Type: Spontaneous
  Country: GB (occurrence: GB)
  Receive Date: 20250729
  Receipt Date: 20250729
  Transmission Date: 20251020
  Serious: Yes (Other)
  Sender: RANBAXY
  Company Number: GB-SUN PHARMACEUTICAL INDUSTRIES LTD-2025RR-519413

PATIENT
  Age: 17 Year
  Sex: Male
  Weight: 62 kg

DRUGS (1)
  1. SERTRALINE [Suspect]
     Active Substance: SERTRALINE HYDROCHLORIDE
     Indication: Social anxiety disorder
     Route: 065

REACTIONS (6)
  - Contusion [Not Recovered/Not Resolved]
  - Hot flush [Recovering/Resolving]
  - Temperature intolerance [Not Recovered/Not Resolved]
  - Headache [Not Recovered/Not Resolved]
  - Pruritus [Not Recovered/Not Resolved]
  - Petechiae [Not Recovered/Not Resolved]
